FAERS Safety Report 6338872-6 (Version None)
Quarter: 2009Q3

REPORT INFORMATION
  Report Type: 
  Country: None (occurrence: None)
  Receive Date: 20090903
  Receipt Date: 20090824
  Transmission Date: 20100115
  Serious: Yes (Other)
  Sender: FDA-Public Use
  Company Number: PHHY2009BR36250

PATIENT
  Sex: Male
  Weight: 127 kg

DRUGS (5)
  1. DIOVAN HCT [Suspect]
     Indication: HYPERTENSION
     Dosage: 1 TABLET (160/25 MG) DAILY
     Route: 048
     Dates: start: 20080901
  2. AAS [Concomitant]
     Indication: PROPHYLAXIS
     Dosage: 1 TABLET AFTER LUNCH
     Dates: start: 20050801
  3. BROMAZEPAM [Concomitant]
     Indication: NEURODEGENERATIVE DISORDER
     Dosage: 1 TABLET AT NIGHT
     Route: 048
     Dates: start: 20080201
  4. BROMAZEPAM [Concomitant]
     Indication: INSOMNIA
  5. BROMAZEPAM [Concomitant]
     Indication: DEPRESSION

REACTIONS (4)
  - JOINT DISLOCATION [None]
  - POLLAKIURIA [None]
  - ROAD TRAFFIC ACCIDENT [None]
  - UPPER LIMB FRACTURE [None]
